FAERS Safety Report 9708272 (Version 4)
Quarter: 2014Q1

REPORT INFORMATION
  Report Type: Spontaneous
  Country: IT (occurrence: IT)
  Receive Date: 20131125
  Receipt Date: 20140228
  Transmission Date: 20141002
  Serious: Yes (Disabling)
  Sender: FDA-Public Use
  Company Number: IT-BRISTOL-MYERS SQUIBB COMPANY-19842095

PATIENT
  Age: 60 Year
  Sex: Male
  Weight: 48 kg

DRUGS (12)
  1. ERBITUX SOLN FOR INF [Suspect]
     Indication: LARYNGEAL CANCER METASTATIC
     Route: 042
     Dates: start: 20130625, end: 20130905
  2. CISPLATINE [Suspect]
     Indication: LARYNGEAL CANCER METASTATIC
     Route: 042
     Dates: start: 20130625, end: 20130829
  3. XELODA [Suspect]
     Indication: LARYNGEAL CANCER METASTATIC
     Route: 048
     Dates: start: 20130625, end: 20130906
  4. EMEND [Concomitant]
     Indication: PROPHYLAXIS OF NAUSEA AND VOMITING
     Route: 048
     Dates: start: 20130625, end: 20130828
  5. SOLDESAM [Concomitant]
     Indication: PROPHYLAXIS OF NAUSEA AND VOMITING
     Dosage: 1DF=8 MG/2ML
     Route: 048
  6. SOLDESAM [Concomitant]
     Indication: ALLERGY PROPHYLAXIS
     Dosage: 1DF=8 MG/2ML
     Route: 048
  7. ONDANSETRON [Concomitant]
     Indication: PROPHYLAXIS OF NAUSEA AND VOMITING
  8. CHLORPHENAMINE MALEATE [Concomitant]
     Indication: ALLERGY PROPHYLAXIS
  9. EPOETIN BETA [Concomitant]
     Indication: ANAEMIA
     Route: 058
     Dates: start: 20130806
  10. OMEPRAZOLE [Concomitant]
     Indication: GASTRIC DISORDER
     Route: 048
  11. FERLIXIT [Concomitant]
     Indication: COLONY STIMULATING FACTOR PROPHYLAXIS
     Dosage: 1DF:5MG/ML(2 BOTTLES IN 250M1 OF SALINE SOLUTION)
     Dates: start: 20130813, end: 20130905
  12. CALCIUM-SANDOZ [Concomitant]

REACTIONS (1)
  - Cerebral ischaemia [Recovering/Resolving]
